FAERS Safety Report 14092564 (Version 2)
Quarter: 2017Q4

REPORT INFORMATION
  Report Type: Spontaneous
  Country: US (occurrence: US)
  Receive Date: 20171016
  Receipt Date: 20171018
  Transmission Date: 20180321
  Serious: Yes (Other)
  Sender: FDA-Public Use
  Company Number: US-JNJFOC-20171012267

PATIENT
  Sex: Female

DRUGS (1)
  1. INVEGA SUSTENNA [Suspect]
     Active Substance: PALIPERIDONE PALMITATE
     Indication: PRODUCT USED FOR UNKNOWN INDICATION
     Route: 030
     Dates: start: 2017

REACTIONS (5)
  - Confusional state [Unknown]
  - Drug ineffective [Unknown]
  - Anxiety [Unknown]
  - Depressed level of consciousness [Unknown]
  - Galactorrhoea [Recovering/Resolving]

NARRATIVE: CASE EVENT DATE: 2017
